FAERS Safety Report 21721346 (Version 4)
Quarter: 2023Q1

REPORT INFORMATION
  Report Type: Report from Study
  Country: US (occurrence: US)
  Receive Date: 20221213
  Receipt Date: 20230225
  Transmission Date: 20230417
  Serious: No
  Sender: FDA-Public Use
  Company Number: US-002147023-NVSC2022US287691

PATIENT
  Age: 26 Year
  Sex: Female

DRUGS (1)
  1. ILARIS [Suspect]
     Active Substance: CANAKINUMAB
     Indication: Cryopyrin associated periodic syndrome
     Dosage: 150 MG, Q2MO (OTHER)
     Route: 058
     Dates: start: 20201110

REACTIONS (13)
  - SARS-CoV-2 test positive [Unknown]
  - Fatigue [Unknown]
  - Pain [Unknown]
  - Cold sweat [Unknown]
  - Cough [Unknown]
  - Rhinorrhoea [Unknown]
  - Ear pain [Unknown]
  - Oropharyngeal pain [Unknown]
  - Nasal congestion [Unknown]
  - Dyspnoea [Unknown]
  - Chest discomfort [Unknown]
  - Ear infection [Unknown]
  - Bronchitis [Unknown]

NARRATIVE: CASE EVENT DATE: 20221206
